FAERS Safety Report 5191255-7 (Version None)
Quarter: 2006Q4

REPORT INFORMATION
  Report Type: 
  Country: None (occurrence: None)
  Receive Date: 20061218
  Receipt Date: 20061205
  Transmission Date: 20070319
  Serious: Yes (Other)
  Sender: FDA-Public Use
  Company Number: NLWYE640724NOV06

PATIENT
  Age: 40 Year
  Sex: Female

DRUGS (5)
  1. EFFEXOR [Suspect]
     Indication: OBSESSIVE-COMPULSIVE DISORDER
     Dosage: SEE IMAGE
     Route: 048
     Dates: start: 20061109, end: 20061115
  2. EFFEXOR [Suspect]
     Indication: OBSESSIVE-COMPULSIVE DISORDER
     Dosage: SEE IMAGE
     Route: 048
     Dates: start: 20061116
  3. TRINOVUM (ETHINYLESTRADIOL/NORETHISTERONE) [Concomitant]
  4. NOVORAPID (INSULIN ASPART) [Concomitant]
  5. INSULIN DETEMIR (INSULIN DETEMIR) [Concomitant]

REACTIONS (2)
  - DIABETES MELLITUS INADEQUATE CONTROL [None]
  - HYPOGLYCAEMIA [None]
